FAERS Safety Report 25156101 (Version 3)
Quarter: 2025Q3

REPORT INFORMATION
  Report Type: Spontaneous
  Country: EU (occurrence: EU)
  Receive Date: 20250403
  Receipt Date: 20250916
  Transmission Date: 20251021
  Serious: Yes (Hospitalization, Other)
  Sender: GLAXOSMITHKLINE
  Company Number: EU-GSK-FR2025EME006238

PATIENT
  Sex: Female
  Weight: 59 kg

DRUGS (18)
  1. LAMICTAL [Suspect]
     Active Substance: LAMOTRIGINE
     Indication: Product used for unknown indication
  2. REQUIP [Suspect]
     Active Substance: ROPINIROLE HYDROCHLORIDE
     Indication: Parkinson^s disease
  3. REQUIP [Suspect]
     Active Substance: ROPINIROLE HYDROCHLORIDE
  4. REQUIP [Suspect]
     Active Substance: ROPINIROLE HYDROCHLORIDE
  5. REQUIP [Suspect]
     Active Substance: ROPINIROLE HYDROCHLORIDE
     Dosage: 8 MG, QD
  6. AZILECT [Suspect]
     Active Substance: RASAGILINE MESYLATE
     Indication: Parkinson^s disease
  7. AZILECT [Suspect]
     Active Substance: RASAGILINE MESYLATE
     Indication: Behaviour disorder
  8. RASAGILINE [Suspect]
     Active Substance: RASAGILINE
     Indication: Parkinson^s disease
     Dosage: UNK UNK, QD,1 MORNING
  9. RASAGILINE [Suspect]
     Active Substance: RASAGILINE
     Dosage: 1 MG, QD
  10. KETOPROFEN [Suspect]
     Active Substance: KETOPROFEN
     Indication: Product used for unknown indication
  11. ROPINIROLE [Suspect]
     Active Substance: ROPINIROLE
     Indication: Parkinson^s disease
     Dosage: UNK UNK, QD,1 MORNING
  12. ROPINIROLE [Suspect]
     Active Substance: ROPINIROLE
  13. ROPINIROLE [Suspect]
     Active Substance: ROPINIROLE
     Dosage: 8 MG, QD
  14. SINEMET [Suspect]
     Active Substance: CARBIDOPA\LEVODOPA
     Indication: Tremor
  15. SINEMET [Suspect]
     Active Substance: CARBIDOPA\LEVODOPA
  16. SINEMET [Suspect]
     Active Substance: CARBIDOPA\LEVODOPA
     Dosage: UNK UNK, TID CURRENTLY (T TAB 3 TIMES)
  17. SINEMET [Suspect]
     Active Substance: CARBIDOPA\LEVODOPA
  18. PRAMIPEXOLE [Suspect]
     Active Substance: PRAMIPEXOLE
     Indication: Product used for unknown indication

REACTIONS (35)
  - Depression [Recovered/Resolved]
  - Suicidal ideation [Recovered/Resolved]
  - Dependence [Recovered/Resolved]
  - Akinesia [Unknown]
  - Behaviour disorder [Recovered/Resolved]
  - Weight increased [Recovered/Resolved]
  - Mixed anxiety and depressive disorder [Recovered/Resolved]
  - Libido increased [Recovered/Resolved]
  - Hypersexuality [Recovered/Resolved]
  - Eating disorder [Unknown]
  - Gambling disorder [Recovered/Resolved]
  - Impulse-control disorder [Recovered/Resolved]
  - Obsessive-compulsive disorder [Recovered/Resolved]
  - Adverse drug reaction [Recovered/Resolved]
  - Pain in extremity [Unknown]
  - Tremor [Recovered/Resolved]
  - Pruritus [Unknown]
  - Alopecia [Unknown]
  - Hyposmia [Unknown]
  - Fatigue [Unknown]
  - Restless legs syndrome [Unknown]
  - Back pain [Unknown]
  - Paraesthesia [Unknown]
  - Lordosis [Unknown]
  - Osteoarthritis [Unknown]
  - Urinary incontinence [Unknown]
  - Disturbance in attention [Unknown]
  - Orthostatic intolerance [Unknown]
  - Memory impairment [Unknown]
  - Lack of spontaneous speech [Unknown]
  - Gastrointestinal hypermotility [Unknown]
  - Attention deficit hyperactivity disorder [Unknown]
  - Fine motor skill dysfunction [Unknown]
  - Insomnia [Recovered/Resolved]
  - Pain [Recovered/Resolved]
